FAERS Safety Report 7333131-7 (Version None)
Quarter: 2011Q1

REPORT INFORMATION
  Report Type: 
  Country: None (occurrence: None)
  Receive Date: 20110304
  Receipt Date: 20110225
  Transmission Date: 20110831
  Serious: Yes (Hospitalization)
  Sender: FDA-Public Use
  Company Number: CA-ALLERGAN-1102731US

PATIENT
  Age: 48 Year
  Sex: Male

DRUGS (1)
  1. BOTOXA? [Suspect]
     Indication: MUSCLE SPASMS
     Dosage: 500 UNITS, SINGLE
     Route: 030
     Dates: start: 20100601, end: 20100601

REACTIONS (6)
  - CHEST PAIN [None]
  - HYPERTENSION [None]
  - LOCAL SWELLING [None]
  - DYSPHAGIA [None]
  - NECK PAIN [None]
  - OVERDOSE [None]
